FAERS Safety Report 21105449 (Version 2)
Quarter: 2022Q3

REPORT INFORMATION
  Report Type: Spontaneous
  Country: JP (occurrence: JP)
  Receive Date: 20220720
  Receipt Date: 20220809
  Transmission Date: 20221027
  Serious: Yes (Other)
  Sender: FDA-Public Use
  Company Number: JP-SA-2022SA277401

PATIENT
  Age: 73 Year
  Sex: Male

DRUGS (3)
  1. DOCETAXEL [Suspect]
     Active Substance: DOCETAXEL
     Indication: Oropharyngeal cancer
     Dosage: 75 MG/M2
     Route: 065
  2. CISPLATIN [Suspect]
     Active Substance: CISPLATIN
     Indication: Oropharyngeal cancer
     Dosage: 75 MG/M2, QD DAY 1
     Route: 065
  3. FLUOROURACIL [Suspect]
     Active Substance: FLUOROURACIL
     Indication: Oropharyngeal cancer
     Dosage: 750 MG/M2, QD ON DAY 1 TO 5
     Route: 065

REACTIONS (2)
  - Impaired gastric emptying [Recovered/Resolved]
  - Abdominal distension [Recovered/Resolved]
